FAERS Safety Report 13551215 (Version 1)
Quarter: 2017Q2

REPORT INFORMATION
  Report Type: Spontaneous
  Country: US (occurrence: US)
  Receive Date: 20170516
  Receipt Date: 20170516
  Transmission Date: 20170830
  Serious: Yes (Other)
  Sender: FDA-Public Use
  Company Number: US-APOPHARMA USA, INC.-2017AP012243

PATIENT
  Age: 58 Year
  Sex: Female

DRUGS (3)
  1. ALKERAN [Suspect]
     Active Substance: MELPHALAN
     Indication: PLASMA CELL MYELOMA
     Dosage: UNK, UNKNOWN
     Route: 065
  2. PREDNISONE. [Concomitant]
     Active Substance: PREDNISONE
     Indication: PLASMA CELL MYELOMA
     Dosage: UNK, UNKNOWN
     Route: 065
  3. PROCARBAZINE [Concomitant]
     Active Substance: PROCARBAZINE
     Indication: PLASMA CELL MYELOMA
     Dosage: UNK, UNKNOWN
     Route: 065

REACTIONS (1)
  - Acute myeloid leukaemia [Unknown]
